FAERS Safety Report 6132679-0 (Version None)
Quarter: 2009Q1

REPORT INFORMATION
  Report Type: 
  Country: None (occurrence: None)
  Receive Date: 20090324
  Receipt Date: 20090310
  Transmission Date: 20090719
  Serious: No
  Sender: FDA-Public Use
  Company Number: 232057K09USA

PATIENT
  Age: 42 Year
  Sex: Male

DRUGS (5)
  1. REBIF [Suspect]
     Indication: MULTIPLE SCLEROSIS
     Dosage: 44 MCG, 3 IN 1 WEEKS, SUBCUTANEOUS
     Route: 058
     Dates: start: 20050504
  2. NEURONTIN [Concomitant]
  3. KEPPRA [Concomitant]
  4. HYDROCODONE (HYDROCODONE) [Concomitant]
  5. COUMADIN [Concomitant]

REACTIONS (1)
  - NO ADVERSE EVENT [None]
